FAERS Safety Report 21973576 (Version 1)
Quarter: 2023Q1

REPORT INFORMATION
  Report Type: Spontaneous
  Country: US (occurrence: US)
  Receive Date: 20230209
  Receipt Date: 20230209
  Transmission Date: 20230418
  Serious: No
  Sender: FDA-Public Use
  Company Number: US-SA-SAC20230206001181

PATIENT
  Sex: Female
  Weight: 67.13 kg

DRUGS (4)
  1. DUPIXENT [Suspect]
     Active Substance: DUPILUMAB
     Indication: Eczema
     Dosage: 300 MG, QOW
     Route: 058
     Dates: start: 202212
  2. DUPIXENT [Suspect]
     Active Substance: DUPILUMAB
     Indication: Dermatitis atopic
  3. XOLAIR [Suspect]
     Active Substance: OMALIZUMAB
     Indication: Asthma
     Dosage: UNK, QOW
  4. XOLAIR [Suspect]
     Active Substance: OMALIZUMAB
     Dosage: UNK, QM
     Dates: start: 202209

REACTIONS (2)
  - Skin induration [Recovering/Resolving]
  - Skin exfoliation [Recovering/Resolving]
